FAERS Safety Report 5011354-X (Version None)
Quarter: 2006Q2

REPORT INFORMATION
  Report Type: 
  Country: None (occurrence: None)
  Receive Date: 20060404
  Receipt Date: 20060110
  Transmission Date: 20061013
  Serious: No
  Sender: FDA-Public Use
  Company Number: US200601001577

PATIENT
  Age: 56 Year
  Sex: Male

DRUGS (10)
  1. CYMBALTA [Suspect]
     Indication: NEURALGIA
     Dosage: 20 MG, 2/D
     Dates: start: 20051201
  2. HYDROCHLOROTHIAZIDE [Concomitant]
  3. GEMFIBROZIL [Concomitant]
  4. ZOCOR [Concomitant]
  5. PRILOSEC [Concomitant]
  6. AMBIEN [Concomitant]
  7. HYDROCODONE BITARTRATE [Concomitant]
  8. DIAZEPAM [Concomitant]
  9. CLONAZEPAM [Concomitant]
  10. MORPHINE SULFATE (MORPHINE SULFATE UNKNOWN FORMULATION) [Concomitant]

REACTIONS (6)
  - DISSOCIATION [None]
  - FEELING ABNORMAL [None]
  - MIDDLE INSOMNIA [None]
  - NAUSEA [None]
  - SKIN DISORDER [None]
  - SLEEP DISORDER [None]
